FAERS Safety Report 24300701 (Version 2)
Quarter: 2024Q4

REPORT INFORMATION
  Report Type: Spontaneous
  Country: JP (occurrence: JP)
  Receive Date: 20240910
  Receipt Date: 20241101
  Transmission Date: 20250115
  Serious: Yes (Other)
  Sender: GENMAB
  Company Number: JP-GENMAB-2024-03179

PATIENT
  Age: 62 Year
  Sex: Male

DRUGS (1)
  1. EPKINLY [Suspect]
     Active Substance: EPCORITAMAB-BYSP
     Indication: Double hit lymphoma
     Dosage: UNK, UP TO C1D22
     Route: 065
     Dates: start: 202406, end: 2024

REACTIONS (3)
  - Double hit lymphoma [Unknown]
  - Renal disorder [Unknown]
  - Cytokine release syndrome [Unknown]

NARRATIVE: CASE EVENT DATE: 20240101
